FAERS Safety Report 10903148 (Version 2)
Quarter: 2015Q1

REPORT INFORMATION
  Report Type: Spontaneous
  Country: JP (occurrence: JP)
  Receive Date: 20150311
  Receipt Date: 20150316
  Transmission Date: 20150721
  Serious: Yes (Hospitalization, Disabling, Other)
  Sender: FDA-Public Use
  Company Number: JP-ROCHE-1549066

PATIENT
  Age: 69 Year
  Sex: Male
  Weight: 50 kg

DRUGS (5)
  1. 5-FU [Concomitant]
     Active Substance: FLUOROURACIL
     Indication: RECTAL CANCER METASTATIC
     Dosage: COMPLETED TREATMENT CYCLE NUMBER: 6
     Route: 041
     Dates: start: 20140925, end: 20141222
  2. ELPLAT [Concomitant]
     Active Substance: OXALIPLATIN
     Indication: RECTAL CANCER METASTATIC
     Dosage: COMPLETED TREATMENT CYCLE NUMBER: 6
     Route: 041
     Dates: start: 20140925, end: 20141222
  3. AVASTIN [Suspect]
     Active Substance: BEVACIZUMAB
     Indication: RECTAL CANCER METASTATIC
     Dosage: TREATMENT LINE: BV+MFOLFOX6?COMPLETED TREATMENT CYCLE NUMBER: 6
     Route: 041
     Dates: start: 20140925, end: 20141222
  4. LEVOFOLINATE [Concomitant]
     Active Substance: LEVOLEUCOVORIN CALCIUM
     Indication: RECTAL CANCER METASTATIC
     Route: 041
     Dates: start: 20140925, end: 20141222
  5. 5-FU [Concomitant]
     Active Substance: FLUOROURACIL
     Indication: RECTAL CANCER METASTATIC
     Route: 040
     Dates: start: 20140925, end: 20141222

REACTIONS (5)
  - Peritonitis [Unknown]
  - Enterocolitis [Unknown]
  - Neurogenic bladder [Unknown]
  - Rectal perforation [Recovered/Resolved]
  - Ileus paralytic [Unknown]

NARRATIVE: CASE EVENT DATE: 20141224
